FAERS Safety Report 7470628-3 (Version None)
Quarter: 2011Q2

REPORT INFORMATION
  Report Type: 
  Country: None (occurrence: None)
  Receive Date: 20110510
  Receipt Date: 20110504
  Transmission Date: 20111010
  Serious: Yes (Other)
  Sender: FDA-Public Use
  Company Number: CA-JNJFOC-20110503729

PATIENT
  Age: 53 Year
  Sex: Female

DRUGS (2)
  1. MOTRIN IB [Suspect]
     Route: 048
  2. MOTRIN IB [Suspect]
     Indication: TOOTHACHE
     Route: 048

REACTIONS (6)
  - APHASIA [None]
  - DIZZINESS [None]
  - VOMITING [None]
  - PALPITATIONS [None]
  - TREMOR [None]
  - SYNCOPE [None]
